FAERS Safety Report 21178108 (Version 4)
Quarter: 2022Q4

REPORT INFORMATION
  Report Type: Spontaneous
  Country: US (occurrence: US)
  Receive Date: 20220805
  Receipt Date: 20221011
  Transmission Date: 20230113
  Serious: Yes (Other)
  Sender: FDA-Public Use
  Company Number: US-SUNOVION-2022SUN002367

PATIENT
  Sex: Female

DRUGS (2)
  1. APTIOM [Suspect]
     Active Substance: ESLICARBAZEPINE ACETATE
     Dosage: 400 MG, BID
     Route: 048
  2. APTIOM [Suspect]
     Active Substance: ESLICARBAZEPINE ACETATE
     Dosage: 400 MG, QD
     Route: 048

REACTIONS (8)
  - Seizure [Unknown]
  - Aphonia [Unknown]
  - Stress [Unknown]
  - Bradykinesia [Unknown]
  - Cough [Unknown]
  - Memory impairment [Unknown]
  - Off label use [Unknown]
  - Therapy interrupted [Unknown]
